FAERS Safety Report 5446304-5 (Version None)
Quarter: 2007Q3

REPORT INFORMATION
  Report Type: 
  Country: None (occurrence: None)
  Receive Date: 20070731
  Receipt Date: 20070612
  Transmission Date: 20080115
  Serious: No
  Sender: FDA-Public Use
  Company Number: US200706004621

PATIENT
  Age: 63 Year
  Sex: Female
  Weight: 113.4 kg

DRUGS (3)
  1. BYETTA [Suspect]
     Indication: TYPE 2 DIABETES MELLITUS
     Dosage: 5 UG, 2/D, SUBCUTANEOUS;  10 UG, 2/D, SUBCUTANEOUS   10 UG, DAILY (1/D), SUBCUTANEOUS
     Route: 058
     Dates: start: 20070401, end: 20070501
  2. BYETTA [Suspect]
     Indication: TYPE 2 DIABETES MELLITUS
     Dosage: 5 UG, 2/D, SUBCUTANEOUS;  10 UG, 2/D, SUBCUTANEOUS   10 UG, DAILY (1/D), SUBCUTANEOUS
     Route: 058
     Dates: start: 20070501, end: 20070501
  3. BYETTA [Suspect]
     Indication: TYPE 2 DIABETES MELLITUS
     Dosage: 5 UG, 2/D, SUBCUTANEOUS;  10 UG, 2/D, SUBCUTANEOUS   10 UG, DAILY (1/D), SUBCUTANEOUS
     Route: 058
     Dates: start: 20070501

REACTIONS (6)
  - ARTHROPATHY [None]
  - BLOOD GLUCOSE INCREASED [None]
  - BLOOD PRESSURE DECREASED [None]
  - HEADACHE [None]
  - MEMORY IMPAIRMENT [None]
  - WEIGHT DECREASED [None]
